FAERS Safety Report 8471543-9 (Version None)
Quarter: 2012Q2

REPORT INFORMATION
  Report Type: 
  Country: None (occurrence: None)
  Receive Date: 20120627
  Receipt Date: 20120615
  Transmission Date: 20120825
  Serious: Yes (Hospitalization)
  Sender: FDA-Public Use
  Company Number: CH-BRISTOL-MYERS SQUIBB COMPANY-16702763

PATIENT
  Age: 79 Year
  Sex: Male
  Weight: 67 kg

DRUGS (10)
  1. ENOXAPARIN SODIUM [Concomitant]
     Dosage: INJ
     Route: 058
     Dates: start: 20120215
  2. GLUCOPHAGE [Suspect]
     Dosage: 1700MG
  3. OXYCODONE HCL [Suspect]
     Dosage: 15FEB-21FEB12,5MG 1IN6HR 21FEB-22FEB12,4MG,1IN4HR 22FEB-22FEB12,4MG,1IN6HR
     Route: 048
     Dates: start: 20120215, end: 20120222
  4. PRIMAXIN [Suspect]
     Route: 040
     Dates: start: 20120223, end: 20120225
  5. CLONAZEPAM [Concomitant]
     Route: 048
     Dates: end: 20120322
  6. ASPIRIN [Concomitant]
     Route: 048
  7. ACCUPAQUE [Suspect]
     Route: 040
     Dates: start: 20120222, end: 20120222
  8. LYRICA [Concomitant]
     Route: 048
  9. SEROQUEL [Concomitant]
     Dates: end: 20120214
  10. CORDARONE [Concomitant]
     Dates: end: 20120214

REACTIONS (4)
  - DERMATITIS EXFOLIATIVE [None]
  - METABOLIC ACIDOSIS [None]
  - RENAL FAILURE [None]
  - SOMNOLENCE [None]
